FAERS Safety Report 16865915 (Version 1)
Quarter: 2019Q3

REPORT INFORMATION
  Report Type: Spontaneous
  Country: US (occurrence: US)
  Receive Date: 20190930
  Receipt Date: 20190930
  Transmission Date: 20191005
  Serious: No
  Sender: FDA-Public Use
  Company Number: US-ALLERGAN-1916114US

PATIENT
  Age: 5 Decade
  Sex: Female

DRUGS (3)
  1. VRAYLAR [Suspect]
     Active Substance: CARIPRAZINE
     Indication: BIPOLAR DISORDER
     Dosage: 3 MG, QD
     Route: 048
     Dates: end: 20190410
  2. VRAYLAR [Suspect]
     Active Substance: CARIPRAZINE
     Dosage: 1.5 MG, QD
     Route: 048
  3. PSYCHIATRIC MEDICATIONS [Concomitant]
     Active Substance: UNSPECIFIED INGREDIENT
     Indication: BIPOLAR DISORDER
     Dosage: UNK, UNKNOWN
     Route: 065

REACTIONS (1)
  - Hypomania [Not Recovered/Not Resolved]
